FAERS Safety Report 5001103-3 (Version None)
Quarter: 2006Q2

REPORT INFORMATION
  Report Type: 
  Country: None (occurrence: None)
  Receive Date: 20060512
  Receipt Date: 20060404
  Transmission Date: 20061013
  Serious: Yes (Hospitalization, Other)
  Sender: FDA-Public Use
  Company Number: PHNU2006DE01573

PATIENT
  Age: 49 Year
  Sex: Male
  Weight: 111 kg

DRUGS (5)
  1. CRANOC (LICENSED, FUJISAWA DEUTSCHLAND) [Suspect]
     Indication: HYPERCHOLESTEROLAEMIA
     Dosage: 80 MG, QW2
     Route: 048
     Dates: start: 20060206, end: 20060306
  2. PARACETAMOL [Suspect]
     Indication: INFLUENZA
     Dosage: 500 MG, TID
     Route: 048
     Dates: start: 20060301, end: 20060301
  3. MOXONIDINE [Concomitant]
     Dosage: 1 DF, QD
  4. DISALUNIL [Concomitant]
     Dosage: 1 DF, QD
  5. CONCOR [Concomitant]
     Dosage: 5 MG, QD

REACTIONS (24)
  - BILIRUBIN CONJUGATED INCREASED [None]
  - BLOOD ALKALINE PHOSPHATASE INCREASED [None]
  - BLOOD BILIRUBIN INCREASED [None]
  - BLOOD CREATININE INCREASED [None]
  - BUNDLE BRANCH BLOCK LEFT [None]
  - C-REACTIVE PROTEIN INCREASED [None]
  - CHROMATURIA [None]
  - GAMMA-GLUTAMYLTRANSFERASE INCREASED [None]
  - GASTROINTESTINAL HYPOMOTILITY [None]
  - HEPATIC STEATOSIS [None]
  - HEPATOCELLULAR DAMAGE [None]
  - HYPERTENSION [None]
  - INFLUENZA [None]
  - JAUNDICE [None]
  - LEUKOCYTOSIS [None]
  - LIPASE INCREASED [None]
  - LUNG DISORDER [None]
  - PANCREAS LIPOMATOSIS [None]
  - PANCREATITIS [None]
  - PHARYNGEAL ERYTHEMA [None]
  - PLEURAL EFFUSION [None]
  - RENAL FAILURE ACUTE [None]
  - TONGUE DISCOLOURATION [None]
  - TRANSAMINASES INCREASED [None]
